FAERS Safety Report 9649005 (Version 1)
Quarter: 2013Q4

REPORT INFORMATION
  Report Type: Spontaneous
  Country: US (occurrence: None)
  Receive Date: 20131018
  Receipt Date: 20131018
  Transmission Date: 20140711
  Serious: No
  Sender: FDA-Public Use
  Company Number: AEGR000103

PATIENT
  Age: 65 Year
  Sex: Female
  Weight: 65.3 kg

DRUGS (9)
  1. JUXTAPID [Suspect]
     Indication: TYPE IIA HYPERLIPIDAEMIA
     Route: 048
     Dates: start: 20130711, end: 20130718
  2. EXFORGE (AMLODIPINE BESLILATE, VALSARTAN) [Concomitant]
  3. CO Q 10 (UBIDECARENONE) [Concomitant]
  4. BIOTIN (BIOTIN) [Concomitant]
  5. LUTEIN (LUTEIN) [Concomitant]
  6. VITAMIN B COMPLEX (CYANOCOBALAMIN, PYRIDOXINE HYDROCHLORIDE, RIBOFLAVIN, THIAMINE HYDROCHLORIDE) [Concomitant]
  7. WELCHOL (COLESEVELAM HYDROCHLORIDE) [Concomitant]
  8. RED YEAST RICE (MONASCUS PURPUREUS W/UBIDECARENONE) [Concomitant]
  9. KRILL OIL (FISH OIL) [Concomitant]

REACTIONS (2)
  - Nausea [None]
  - Low density lipoprotein increased [None]
